FAERS Safety Report 6998994-3 (Version None)
Quarter: 2010Q3

REPORT INFORMATION
  Report Type: 
  Country: None (occurrence: None)
  Receive Date: 20100920
  Receipt Date: 20090902
  Transmission Date: 20110219
  Serious: No
  Sender: FDA-Public Use
  Company Number: US-ASTRAZENECA-2009SE11304

PATIENT
  Age: 50 Year
  Sex: Male

DRUGS (5)
  1. SEROQUEL XR [Suspect]
     Route: 048
  2. SEROQUEL XR [Suspect]
     Route: 048
  3. LAMICTAL [Concomitant]
  4. EFFEXOR XR [Concomitant]
  5. LISINOPRIL [Concomitant]

REACTIONS (4)
  - BLOOD PRESSURE INCREASED [None]
  - DYSPHAGIA [None]
  - OEDEMA [None]
  - SALIVARY HYPERSECRETION [None]
